FAERS Safety Report 11610849 (Version 1)
Quarter: 2015Q4

REPORT INFORMATION
  Report Type: Spontaneous
  Country: US (occurrence: None)
  Receive Date: 20151007
  Receipt Date: 20151007
  Transmission Date: 20160304
  Serious: Yes (Death, Hospitalization)
  Sender: FDA-Public Use
  Company Number: None

PATIENT
  Age: 57 Year
  Sex: Male
  Weight: 98.2 kg

DRUGS (3)
  1. 5-FLUOROURACIL (5-FU) [Suspect]
     Active Substance: FLUOROURACIL
     Dates: end: 20150515
  2. ELOXATIN [Suspect]
     Active Substance: OXALIPLATIN
     Dates: end: 20150501
  3. LEUCOVORIN CALCIUM. [Suspect]
     Active Substance: LEUCOVORIN CALCIUM
     Dates: end: 20150501

REACTIONS (10)
  - Vomiting [None]
  - Neutropenia [None]
  - Haemoglobin decreased [None]
  - Nausea [None]
  - Cardio-respiratory arrest [None]
  - Tachycardia [None]
  - Rash [None]
  - Platelet count decreased [None]
  - Septic shock [None]
  - Hypotension [None]

NARRATIVE: CASE EVENT DATE: 20150509
